FAERS Safety Report 4781629-8 (Version None)
Quarter: 2005Q3

REPORT INFORMATION
  Report Type: 
  Country: None (occurrence: None)
  Receive Date: 20050927
  Receipt Date: 20050914
  Transmission Date: 20060218
  Serious: Yes (Death)
  Sender: FDA-Public Use
  Company Number: 2005124889

PATIENT
  Age: 70 Year
  Sex: Male
  Weight: 60 kg

DRUGS (3)
  1. CAMPTOSAR [Suspect]
     Indication: RECTAL CANCER
     Dosage: 180 MG/M2, INTRAVENOUS
     Route: 042
     Dates: start: 20050701
  2. FUROSEMIDE [Concomitant]
  3. CALCIUM CARBONATE (CALCIUM CARBONATE) [Concomitant]

REACTIONS (9)
  - DIARRHOEA [None]
  - GENERAL PHYSICAL HEALTH DETERIORATION [None]
  - HAEMOGLOBIN DECREASED [None]
  - HYPOVOLAEMIA [None]
  - LUNG DISORDER [None]
  - PLATELET COUNT DECREASED [None]
  - PYREXIA [None]
  - SEPTIC SHOCK [None]
  - WHITE BLOOD CELL COUNT DECREASED [None]
